FAERS Safety Report 17000514 (Version 10)
Quarter: 2021Q3

REPORT INFORMATION
  Report Type: Report from Study
  Country: BE (occurrence: BE)
  Receive Date: 20191106
  Receipt Date: 20210801
  Transmission Date: 20211014
  Serious: Yes (Other)
  Sender: FDA-Public Use
  Company Number: BE-BEH-2019108874

PATIENT
  Age: 60 Year
  Sex: Female
  Weight: 67 kg

DRUGS (17)
  1. HIZENTRA [Suspect]
     Active Substance: HUMAN IMMUNOGLOBULIN G
     Dosage: 3 GRAM, TOT
     Route: 058
     Dates: start: 20200420, end: 20200420
  2. BELLOZAL [Concomitant]
     Active Substance: BILASTINE
     Indication: PREMEDICATION
  3. HIZENTRA [Suspect]
     Active Substance: HUMAN IMMUNOGLOBULIN G
     Dosage: 2 GRAM (10 ML), QW (EVERY WEEK ON MONDAY AND THURSDAY 1 VIAL(S) AT 8:00)
     Route: 058
  4. BELLOZAL [Concomitant]
     Active Substance: BILASTINE
     Indication: PREMEDICATION
  5. HIZENTRA [Suspect]
     Active Substance: HUMAN IMMUNOGLOBULIN G
     Dosage: UNK
     Route: 058
     Dates: start: 20200507, end: 20200507
  6. HIZENTRA [Suspect]
     Active Substance: HUMAN IMMUNOGLOBULIN G
     Dosage: 6 GRAM (30ML), QW
     Route: 058
     Dates: start: 20191025
  7. HIZENTRA [Suspect]
     Active Substance: HUMAN IMMUNOGLOBULIN G
     Dosage: UNK
     Route: 058
  8. HIZENTRA [Suspect]
     Active Substance: HUMAN IMMUNOGLOBULIN G
     Dosage: 3 GRAM, TOT
     Route: 058
     Dates: start: 20200416, end: 20200416
  9. HIZENTRA [Suspect]
     Active Substance: HUMAN IMMUNOGLOBULIN G
     Dosage: 3 GRAM/15 ML
     Route: 058
     Dates: start: 20191025
  10. HIZENTRA [Suspect]
     Active Substance: HUMAN IMMUNOGLOBULIN G
     Dosage: UNK
     Route: 058
  11. HIZENTRA [Suspect]
     Active Substance: HUMAN IMMUNOGLOBULIN G
     Dosage: 6 GRAM/30 ML, QW
     Route: 058
  12. HIZENTRA [Suspect]
     Active Substance: HUMAN IMMUNOGLOBULIN G
     Dosage: 3 GRAM/15 ML, BIW
     Route: 058
  13. HIZENTRA [Suspect]
     Active Substance: HUMAN IMMUNOGLOBULIN G
     Dosage: 6 GRAM/30 ML, TOT
     Route: 058
     Dates: start: 20191115, end: 20191115
  14. HIZENTRA [Suspect]
     Active Substance: HUMAN IMMUNOGLOBULIN G
     Dosage: 6 GRAM/30 ML, QW
     Route: 058
  15. HIZENTRA [Suspect]
     Active Substance: HUMAN IMMUNOGLOBULIN G
     Dosage: 3 GRAM/15 ML, BIW
     Route: 058
  16. HIZENTRA [Suspect]
     Active Substance: HUMAN IMMUNOGLOBULIN G
     Dosage: 3 GRAM, QW
     Route: 058
  17. HIZENTRA [Suspect]
     Active Substance: HUMAN IMMUNOGLOBULIN G
     Dosage: 1 GRAM (5 ML), QW (EVERY WEEK ON MONDAY AND THURSDAY 1 VIAL(S) AT 8:00)
     Route: 058

REACTIONS (21)
  - Headache [Unknown]
  - Vomiting [Unknown]
  - Sleep disorder [Unknown]
  - Pruritus [Unknown]
  - Fatigue [Unknown]
  - Migraine [Recovering/Resolving]
  - Fatigue [Recovering/Resolving]
  - Rash [Unknown]
  - Gastrointestinal disorder [Unknown]
  - Fatigue [Unknown]
  - Hypersensitivity [Unknown]
  - Headache [Not Recovered/Not Resolved]
  - Fatigue [Recovering/Resolving]
  - Meningitis [Unknown]
  - Hypotension [Unknown]
  - Headache [Recovering/Resolving]
  - Diarrhoea [Unknown]
  - Bronchitis [Unknown]
  - Headache [Recovering/Resolving]
  - Headache [Unknown]
  - Nausea [Recovering/Resolving]

NARRATIVE: CASE EVENT DATE: 20191025
